FAERS Safety Report 6784561-3 (Version None)
Quarter: 2010Q2

REPORT INFORMATION
  Report Type: 
  Country: None (occurrence: None)
  Receive Date: 20100520
  Receipt Date: 20090813
  Transmission Date: 20101027
  Serious: Yes (Other)
  Sender: FDA-Public Use
  Company Number: 2009254946

PATIENT
  Age: 61 Year
  Sex: Female

DRUGS (5)
  1. PROVERA [Suspect]
     Indication: HORMONE REPLACEMENT THERAPY
     Dosage: ORAL
     Route: 048
     Dates: start: 19870101, end: 20010401
  2. PREMARIN [Suspect]
     Indication: HORMONE REPLACEMENT THERAPY
     Dosage: 0.625 MG
     Dates: start: 19870101, end: 20010101
  3. PRENATAL (ASCORBIC ACID, CALCIUM GLUCONATE, CUPRIC CARBONATE, BASIC, C [Concomitant]
  4. PROVENTIL INHALER (SALBUTAMOL) [Concomitant]
  5. ALBUTEROL [Concomitant]

REACTIONS (1)
  - BREAST CANCER FEMALE [None]
